FAERS Safety Report 9686993 (Version 2)
Quarter: 2013Q4

REPORT INFORMATION
  Report Type: Spontaneous
  Country: US (occurrence: US)
  Receive Date: 20131113
  Receipt Date: 20131205
  Transmission Date: 20140711
  Serious: No
  Sender: FDA-Public Use
  Company Number: US-B.I. PHARMACEUTICALS,INC./RIDGEFIELD-2013-BI-35665BP

PATIENT
  Sex: Female
  Weight: 79 kg

DRUGS (6)
  1. PRADAXA [Suspect]
     Indication: ATRIAL FIBRILLATION
     Dosage: 300 MG
     Route: 048
     Dates: start: 2011
  2. POTASSIUM CHLORIDE [Concomitant]
     Dosage: 10 MEQ
     Route: 048
  3. NOVULIN INSULIN [Concomitant]
     Indication: DIABETES MELLITUS
     Dosage: 80 U
     Route: 058
  4. METOPROLOL [Concomitant]
     Dosage: 50 MG
     Route: 048
  5. TOPAMAX [Concomitant]
     Indication: CEREBROVASCULAR ACCIDENT
     Dosage: 150 MG
  6. ASPIRIN [Concomitant]
     Dosage: 81 MG
     Route: 048

REACTIONS (4)
  - Contusion [Unknown]
  - Cataract [Not Recovered/Not Resolved]
  - Eye injury [Not Recovered/Not Resolved]
  - Eye injury [Not Recovered/Not Resolved]
